FAERS Safety Report 11433049 (Version 1)
Quarter: 2015Q3

REPORT INFORMATION
  Report Type: Spontaneous
  Country: US (occurrence: None)
  Receive Date: 20150827
  Receipt Date: 20150827
  Transmission Date: 20151125
  Serious: Yes (Hospitalization, Other)
  Sender: FDA-Public Use
  Company Number: ADR-2015-01621

PATIENT
  Age: 48 Year
  Sex: Male

DRUGS (4)
  1. MS CONTIN [Suspect]
     Active Substance: MORPHINE SULFATE
     Route: 048
  2. MORPHINE INTRATHECAL [Suspect]
     Active Substance: MORPHINE
  3. CLONIDINE. [Suspect]
     Active Substance: CLONIDINE
  4. BACLOFEN INTRATHECAL [Suspect]
     Active Substance: BACLOFEN
     Indication: PRODUCT USED FOR UNKNOWN INDICATION

REACTIONS (20)
  - Anxiety [None]
  - Arthralgia [None]
  - Hyperhidrosis [None]
  - Neuroma [None]
  - Hypoaesthesia [None]
  - Loss of consciousness [None]
  - Overdose [None]
  - Neuropathy peripheral [None]
  - Dizziness [None]
  - Dyspnoea [None]
  - Toxicity to various agents [None]
  - Device damage [None]
  - Device leakage [None]
  - Blood pressure increased [None]
  - Device breakage [None]
  - Implant site scar [None]
  - Drug withdrawal syndrome [None]
  - Device kink [None]
  - Nerve compression [None]
  - Pain in extremity [None]

NARRATIVE: CASE EVENT DATE: 20020219
